FAERS Safety Report 17452599 (Version 2)
Quarter: 2020Q1

REPORT INFORMATION
  Report Type: Spontaneous
  Country: PL (occurrence: PL)
  Receive Date: 20200224
  Receipt Date: 20200224
  Transmission Date: 20200409
  Serious: Yes (Hospitalization)
  Sender: FDA-Public Use
  Company Number: PL-PFIZER INC-2020074256

PATIENT
  Age: 61 Year
  Sex: Male

DRUGS (1)
  1. IRINOTECAN HCL [Suspect]
     Active Substance: IRINOTECAN HYDROCHLORIDE
     Indication: CHOLANGIOCARCINOMA
     Dosage: UNK, CYCLIC

REACTIONS (1)
  - Left ventricular dysfunction [Recovering/Resolving]
